FAERS Safety Report 18867167 (Version 31)
Quarter: 2021Q4

REPORT INFORMATION
  Report Type: Report from Study
  Country: CN (occurrence: None)
  Receive Date: 20210209
  Receipt Date: 20211202
  Transmission Date: 20220303
  Serious: Yes (Life-Threatening, Hospitalization)
  Sender: FDA-Public Use
  Company Number: CN-EISAI MEDICAL RESEARCH-EC-2021-087656

PATIENT
  Age: 77 Year
  Sex: Male
  Weight: 50 kg

DRUGS (8)
  1. LENVATINIB [Suspect]
     Active Substance: LENVATINIB
     Indication: Squamous cell carcinoma of head and neck
     Route: 048
     Dates: start: 20201231, end: 20201231
  2. LENVATINIB [Suspect]
     Active Substance: LENVATINIB
     Dosage: OVERDOSE (NOT CLEAR WHICH DAY TO TAKE MORE DRUGS)
     Route: 048
     Dates: start: 20210101, end: 20210120
  3. LENVATINIB [Suspect]
     Active Substance: LENVATINIB
     Route: 048
     Dates: start: 20210121, end: 20210126
  4. PEMBROLIZUMAB [Suspect]
     Active Substance: PEMBROLIZUMAB
     Indication: Squamous cell carcinoma of head and neck
     Route: 042
     Dates: start: 20201231, end: 20201231
  5. PEMBROLIZUMAB [Suspect]
     Active Substance: PEMBROLIZUMAB
     Route: 042
     Dates: start: 20210121, end: 20210121
  6. CELEBREX [Concomitant]
     Active Substance: CELECOXIB
     Dates: start: 20201231, end: 20210130
  7. CELEBREX [Concomitant]
     Active Substance: CELECOXIB
     Dates: start: 20210103, end: 20210130
  8. EUTHYROX [Concomitant]
     Active Substance: LEVOTHYROXINE SODIUM
     Dates: start: 20210114, end: 20210220

REACTIONS (2)
  - Fatigue [Not Recovered/Not Resolved]
  - Pneumonia [Not Recovered/Not Resolved]

NARRATIVE: CASE EVENT DATE: 20210116
